FAERS Safety Report 18768416 (Version 1)
Quarter: 2021Q1

REPORT INFORMATION
  Report Type: Spontaneous
  Country: US (occurrence: US)
  Receive Date: 20210121
  Receipt Date: 20210121
  Transmission Date: 20210419
  Serious: Yes (Other)
  Sender: FDA-Public Use
  Company Number: None

PATIENT
  Age: 68 Year
  Sex: Female
  Weight: 45 kg

DRUGS (16)
  1. ELIQUIS [Concomitant]
     Active Substance: APIXABAN
  2. CRESTOR [Concomitant]
     Active Substance: ROSUVASTATIN CALCIUM
  3. ASA [Concomitant]
     Active Substance: ASPIRIN
  4. LEVOTHYROXINE. [Concomitant]
     Active Substance: LEVOTHYROXINE
  5. OMEPRAZOLE. [Concomitant]
     Active Substance: OMEPRAZOLE
  6. TIZANIDINE. [Concomitant]
     Active Substance: TIZANIDINE
  7. ERGOCALCIFEROL. [Concomitant]
     Active Substance: ERGOCALCIFEROL
  8. NEIFEDIPINE ER [Concomitant]
  9. METOPROLO [Concomitant]
     Active Substance: METOPROLOL
  10. MULTIVIT AND MINERRALS [Concomitant]
  11. KLONOPIN [Concomitant]
     Active Substance: CLONAZEPAM
  12. BACLOFEN. [Concomitant]
     Active Substance: BACLOFEN
  13. TECFIDERA [Suspect]
     Active Substance: DIMETHYL FUMARATE
     Indication: MULTIPLE SCLEROSIS
     Dosage: ?          QUANTITY:1 CAPSULE(S);?
     Route: 048
     Dates: start: 20180621, end: 20210115
  14. LIDOCAN PATCH [Concomitant]
  15. CAPASACIN [Concomitant]
  16. CALCIUM [Concomitant]
     Active Substance: CALCIUM

REACTIONS (10)
  - Paraesthesia [None]
  - Rash [None]
  - Sensory disturbance [None]
  - Balance disorder [None]
  - Urticaria [None]
  - Dizziness [None]
  - Hot flush [None]
  - Pruritus [None]
  - Dyspnoea [None]
  - Skin tightness [None]

NARRATIVE: CASE EVENT DATE: 20210115
